FAERS Safety Report 7835097 (Version 4)
Quarter: 2015Q4

REPORT INFORMATION
  Report Type: Spontaneous
  Country: CA (occurrence: CA)
  Receive Date: 20110301
  Receipt Date: 20151103
  Transmission Date: 20160305
  Serious: Yes (Death, Life-Threatening, Hospitalization, Other)
  Sender: FDA-Public Use
  Company Number: CA-ROCHE-761653

PATIENT
  Sex: Male

DRUGS (2)
  1. XELODA [Suspect]
     Active Substance: CAPECITABINE
     Route: 042
     Dates: start: 20110204, end: 20110206
  2. XELODA [Suspect]
     Active Substance: CAPECITABINE
     Indication: COLORECTAL CANCER
     Route: 048
     Dates: start: 20110203, end: 20110205

REACTIONS (13)
  - Secretion discharge [Unknown]
  - Disease progression [Fatal]
  - Oral mucosal discolouration [Unknown]
  - Swelling [Unknown]
  - Pyrexia [Unknown]
  - Pain [Unknown]
  - Dysphagia [Unknown]
  - Skin necrosis [Unknown]
  - Toxicity to various agents [Fatal]
  - Gastrointestinal disorder [Unknown]
  - Tongue disorder [Unknown]
  - Ill-defined disorder [Unknown]
  - Speech disorder [Unknown]
